FAERS Safety Report 10418742 (Version 1)
Quarter: 2014Q3

REPORT INFORMATION
  Report Type: Spontaneous
  Country: US (occurrence: US)
  Receive Date: 20140829
  Receipt Date: 20140829
  Transmission Date: 20150326
  Serious: No
  Sender: FDA-Public Use
  Company Number: US-TARO-2014P1001540

PATIENT
  Sex: Male
  Weight: 68.4 kg

DRUGS (5)
  1. TOPICORT [Suspect]
     Active Substance: DESOXIMETASONE
     Indication: PSORIASIS
     Dosage: BID
     Route: 061
     Dates: start: 2013, end: 2013
  2. UNSPECIFIED VITAMIN [Concomitant]
     Dosage: QD
  3. LOSARTAN [Concomitant]
     Active Substance: LOSARTAN
  4. ASPIRIN. [Concomitant]
     Active Substance: ASPIRIN
  5. LOVAZA [Concomitant]
     Active Substance: OMEGA-3-ACID ETHYL ESTERS
     Dosage: BID

REACTIONS (1)
  - Drug ineffective [Not Recovered/Not Resolved]

NARRATIVE: CASE EVENT DATE: 2013
